FAERS Safety Report 9610617 (Version 2)
Quarter: 2013Q4

REPORT INFORMATION
  Report Type: Spontaneous
  Country: CO (occurrence: CO)
  Receive Date: 20131009
  Receipt Date: 20131009
  Transmission Date: 20140711
  Serious: Yes (Other)
  Sender: FDA-Public Use
  Company Number: CO-BRISTOL-MYERS SQUIBB COMPANY-19450378

PATIENT
  Sex: Male

DRUGS (6)
  1. ELIQUIS [Suspect]
     Indication: ATRIAL FIBRILLATION
     Route: 048
     Dates: start: 20130815
  2. ALDACTONE [Suspect]
     Indication: ATRIAL FIBRILLATION
     Route: 048
     Dates: end: 20130913
  3. CARVEDILOL [Concomitant]
  4. OMEPRAZOLE [Concomitant]
  5. ENALAPRIL [Concomitant]
  6. FERROUS SULFATE [Concomitant]

REACTIONS (4)
  - Hypotension [Recovering/Resolving]
  - Haemoglobin decreased [Unknown]
  - Fatigue [Unknown]
  - Malaise [Unknown]
